FAERS Safety Report 7439731-8 (Version None)
Quarter: 2011Q2

REPORT INFORMATION
  Report Type: 
  Country: None (occurrence: None)
  Receive Date: 20110427
  Receipt Date: 20110418
  Transmission Date: 20111010
  Serious: Yes (Death, Other)
  Sender: FDA-Public Use
  Company Number: PHHY2010GB60756

PATIENT
  Age: 29 Year
  Sex: Male
  Weight: 81 kg

DRUGS (4)
  1. DULOXETINE [Suspect]
  2. NALTREXONE HYDROCHLORIDE [Concomitant]
  3. CLOZAPINE [Suspect]
  4. CITALOPRAM [Suspect]

REACTIONS (8)
  - GASTRITIS EROSIVE [None]
  - CARDIOMEGALY [None]
  - TOXICITY TO VARIOUS AGENTS [None]
  - DUODENITIS [None]
  - PULMONARY CONGESTION [None]
  - CARDIAC ARREST [None]
  - ANTIPSYCHOTIC DRUG LEVEL INCREASED [None]
  - OEDEMA [None]
